FAERS Safety Report 10621745 (Version 3)
Quarter: 2014Q4

REPORT INFORMATION
  Report Type: Spontaneous
  Country: US (occurrence: US)
  Receive Date: 20141203
  Receipt Date: 20141223
  Transmission Date: 20150529
  Serious: No
  Sender: FDA-Public Use
  Company Number: US-PFIZER INC-2014328520

PATIENT
  Age: 30 Year
  Sex: Male
  Weight: 77 kg

DRUGS (2)
  1. VIAGRA [Suspect]
     Active Substance: SILDENAFIL CITRATE
     Indication: DISTURBANCE IN SEXUAL AROUSAL
     Dosage: 1 DF, AS NEEDED (1 TABLET BY MOUTH AS NEEDED)
     Dates: start: 20141207, end: 20141210
  2. VIAGRA [Suspect]
     Active Substance: SILDENAFIL CITRATE
     Indication: ERECTILE DYSFUNCTION
     Dosage: THREE TABLETS, LOWEST DOSAGE
     Dates: start: 20141124, end: 20141208

REACTIONS (6)
  - Penile vascular disorder [Recovered/Resolved]
  - Skin discolouration [Recovered/Resolved]
  - Painful erection [Not Recovered/Not Resolved]
  - Genital disorder male [Not Recovered/Not Resolved]
  - Penis disorder [Recovered/Resolved]
  - Skin odour abnormal [Not Recovered/Not Resolved]

NARRATIVE: CASE EVENT DATE: 20141124
